FAERS Safety Report 23065148 (Version 3)
Quarter: 2023Q4

REPORT INFORMATION
  Report Type: Spontaneous
  Country: US (occurrence: US)
  Receive Date: 20231013
  Receipt Date: 20231222
  Transmission Date: 20240110
  Serious: No
  Sender: FDA-Public Use
  Company Number: US-PFIZER INC-PV202300070551

PATIENT
  Age: 80 Year
  Sex: Male

DRUGS (2)
  1. TIKOSYN [Suspect]
     Active Substance: DOFETILIDE
     Dosage: 250 UG, 2X/DAY (TAKES 250 MCG TWICE A DAY ALONG WITH A 125 TWICE A DAY)
  2. TIKOSYN [Suspect]
     Active Substance: DOFETILIDE
     Dosage: 125 UG, 2X/DAY (TAKES 250 MCG TWICE A DAY ALONG WITH A 125 TWICE A DAY

REACTIONS (2)
  - Visual impairment [Unknown]
  - Off label use [Unknown]
